FAERS Safety Report 14872244 (Version 1)
Quarter: 2018Q2

REPORT INFORMATION
  Report Type: Spontaneous
  Country: FR (occurrence: FR)
  Receive Date: 20180509
  Receipt Date: 20180509
  Transmission Date: 20180711
  Serious: Yes (Hospitalization, Other)
  Sender: FDA-Public Use
  Company Number: FR-BAUSCH-BL-2018-012919

PATIENT
  Age: 17 Year
  Sex: Male

DRUGS (7)
  1. VANCOMYCIN [Suspect]
     Active Substance: VANCOMYCIN
     Indication: PRODUCT USED FOR UNKNOWN INDICATION
     Dosage: 1 MG/0.1 ML
     Route: 050
     Dates: start: 201305
  2. GENTAMICIN. [Suspect]
     Active Substance: GENTAMICIN
     Indication: PANOPHTHALMITIS
     Dosage: ADMINISTERED ON THE SAME DAY
     Route: 050
     Dates: start: 20130531
  3. CEFTAZIDIME. [Suspect]
     Active Substance: CEFTAZIDIME
     Indication: PRODUCT USED FOR UNKNOWN INDICATION
     Dosage: 2.25 MG/0.1 ML
     Route: 050
     Dates: start: 201305
  4. METRONIDAZOLE. [Suspect]
     Active Substance: METRONIDAZOLE
     Indication: PANOPHTHALMITIS
     Dosage: 4 TIMES (0.25 TIME OF DAY)
     Route: 065
     Dates: start: 20130531
  5. GENTAMICIN. [Suspect]
     Active Substance: GENTAMICIN
     Indication: PANOPHTHALMITIS
     Dosage: ONCE
     Route: 050
     Dates: start: 20130531, end: 20130531
  6. IMIPENEM [Suspect]
     Active Substance: IMIPENEM
     Indication: PANOPHTHALMITIS
     Dosage: EVERY 6 HOURS
     Route: 065
     Dates: start: 20130531
  7. CEFTAZIDIME. [Suspect]
     Active Substance: CEFTAZIDIME
     Route: 050

REACTIONS (2)
  - Blindness [Recovered/Resolved with Sequelae]
  - Drug ineffective [Recovered/Resolved with Sequelae]
